FAERS Safety Report 6272727-0 (Version None)
Quarter: 2009Q3

REPORT INFORMATION
  Report Type: 
  Country: None (occurrence: None)
  Receive Date: 20090717
  Receipt Date: 20090709
  Transmission Date: 20100115
  Serious: Yes (Disabling, Other)
  Sender: FDA-Public Use
  Company Number: PHEH2009US02599

PATIENT
  Age: 50 Year
  Sex: Male

DRUGS (1)
  1. RITALIN [Suspect]

REACTIONS (8)
  - BIPOLAR DISORDER [None]
  - DISABILITY [None]
  - FEELING ABNORMAL [None]
  - HYPERTENSION [None]
  - LEARNING DISABILITY [None]
  - MENTAL DISORDER [None]
  - MOOD SWINGS [None]
  - SUICIDAL BEHAVIOUR [None]
